FAERS Safety Report 17166972 (Version 1)
Quarter: 2019Q4

REPORT INFORMATION
  Report Type: Spontaneous
  Country: US (occurrence: US)
  Receive Date: 20191217
  Receipt Date: 20191217
  Transmission Date: 20200122
  Serious: No
  Sender: FDA-Public Use
  Company Number: None

PATIENT
  Age: 46 Year
  Sex: Female
  Weight: 107 kg

DRUGS (11)
  1. SIMPONI [Suspect]
     Active Substance: GOLIMUMAB
     Indication: POLYARTHRITIS
     Route: 058
     Dates: start: 20190509, end: 20191206
  2. DUAVEE [Suspect]
     Active Substance: BAZEDOXIFENE ACETATE\ESTROGENS, CONJUGATED
  3. ALPRAZOLAM 0.25MG [Suspect]
     Active Substance: ALPRAZOLAM
     Dates: start: 20141125
  4. LISINOPRIL. [Suspect]
     Active Substance: LISINOPRIL
  5. FLUOXETINE [Suspect]
     Active Substance: FLUOXETINE HYDROCHLORIDE
  6. HYDROCODONE-ACETAMINOPEH 5-325MG [Suspect]
     Active Substance: ACETAMINOPHEN\HYDROCODONE
     Dates: start: 20191010
  7. CHLORTHALIDONE 12.5MG [Suspect]
     Active Substance: CHLORTHALIDONE
  8. GABAPENTIN 300MG [Suspect]
     Active Substance: GABAPENTIN
     Dates: start: 20170509
  9. IANSOPRAZOLE 30MG [Suspect]
     Active Substance: LANSOPRAZOLE
     Dates: start: 20141125
  10. ALLOPURINOL 100MG [Suspect]
     Active Substance: ALLOPURINOL
  11. METHOCARBAMOL 500MG GENERIC FOR ROBAXIN [Suspect]
     Active Substance: METHOCARBAMOL
     Dates: start: 20181016

REACTIONS (1)
  - Multiple sclerosis [None]

NARRATIVE: CASE EVENT DATE: 20191125
